FAERS Safety Report 13420836 (Version 1)
Quarter: 2017Q2

REPORT INFORMATION
  Report Type: Report from Study
  Country: US (occurrence: US)
  Receive Date: 20170409
  Receipt Date: 20170409
  Transmission Date: 20170830
  Serious: No
  Sender: FDA-Public Use
  Company Number: US-AMGEN-USASL2017049247

PATIENT
  Age: 52 Year
  Sex: Female

DRUGS (1)
  1. ENBREL [Suspect]
     Active Substance: ETANERCEPT
     Indication: ANKYLOSING SPONDYLITIS
     Dosage: 50 MG, QWK
     Route: 065

REACTIONS (8)
  - Viral upper respiratory tract infection [Unknown]
  - Lymphadenopathy [Unknown]
  - Arthralgia [Unknown]
  - Night sweats [Unknown]
  - Fatigue [Unknown]
  - Haemoptysis [Recovering/Resolving]
  - Pruritus [Unknown]
  - Abdominal pain upper [Unknown]
